FAERS Safety Report 4658375-4 (Version None)
Quarter: 2005Q2

REPORT INFORMATION
  Report Type: 
  Country: None (occurrence: None)
  Receive Date: 20050509
  Receipt Date: 20050426
  Transmission Date: 20051028
  Serious: Yes (Hospitalization, Other)
  Sender: FDA-Public Use
  Company Number: 2005066602

PATIENT
  Sex: Male

DRUGS (15)
  1. CAVERJECT [Suspect]
     Indication: ERECTILE DYSFUNCTION
     Dosage: 7.5 MG
     Dates: end: 20050101
  2. CLOPIDOGREL BISULFATE [Concomitant]
  3. METFORMIN HCL [Concomitant]
  4. PIOGLITAZONE HCL [Concomitant]
  5. GLIPIZIDE [Concomitant]
  6. SULINDAC [Concomitant]
  7. FUROSEMIDE [Concomitant]
  8. ISOSORBIDE MONONITRATE [Concomitant]
  9. ENALAPRIL MALEATE [Concomitant]
  10. NITROGLYCERIN [Concomitant]
  11. IMPRAMINE HYDROCHLORIDE (IMIPRAMINE HYDROCHLORIDE) [Concomitant]
  12. IMIPRAMINE [Concomitant]
  13. CLONAZEPAM [Concomitant]
  14. CARBAMAZEPINE [Concomitant]
  15. ASPIRIN [Concomitant]

REACTIONS (9)
  - BLOOD CHOLESTEROL INCREASED [None]
  - BLOOD GLUCOSE ABNORMAL [None]
  - CARDIAC DISORDER [None]
  - CARDIAC OPERATION [None]
  - CORONARY ARTERY DISEASE [None]
  - DEPRESSION [None]
  - DRUG DOSE OMISSION [None]
  - INSOMNIA [None]
  - NERVOUSNESS [None]
